FAERS Safety Report 25738394 (Version 1)
Quarter: 2025Q3

REPORT INFORMATION
  Report Type: Spontaneous
  Country: CN (occurrence: CN)
  Receive Date: 20250829
  Receipt Date: 20250829
  Transmission Date: 20251021
  Serious: Yes (Other)
  Sender: ROCHE
  Company Number: CN-ROCHE-10000372698

PATIENT
  Age: 34 Year
  Sex: Female

DRUGS (5)
  1. TRASTUZUMAB [Suspect]
     Active Substance: TRASTUZUMAB
     Indication: Breast cancer
     Route: 042
     Dates: start: 20250809, end: 20250809
  2. PERTUZUMAB [Concomitant]
     Active Substance: PERTUZUMAB
     Indication: Breast cancer
     Route: 042
     Dates: start: 20250809, end: 20250809
  3. TIOPRONIN [Concomitant]
     Active Substance: TIOPRONIN
     Dates: start: 20250809
  4. Human Granulocyte Stimulating Factor [Concomitant]
     Route: 058
     Dates: start: 20250809, end: 20250810
  5. Sheng Xue Bao Ke Li [Concomitant]
     Dosage: 8 G/TIME
     Route: 048
     Dates: start: 20250811

REACTIONS (2)
  - Myelosuppression [Recovering/Resolving]
  - Hepatic failure [Recovering/Resolving]

NARRATIVE: CASE EVENT DATE: 20250809
